FAERS Safety Report 23087957 (Version 1)
Quarter: 2023Q4

REPORT INFORMATION
  Report Type: Spontaneous
  Country: SI (occurrence: SI)
  Receive Date: 20231020
  Receipt Date: 20231020
  Transmission Date: 20240110
  Serious: Yes (Life-Threatening, Hospitalization, Other)
  Sender: FDA-Public Use
  Company Number: SI-ALKEM LABORATORIES LIMITED-SI-ALKEM-2023-12665

PATIENT
  Age: 69 Year
  Sex: Female

DRUGS (17)
  1. QUETIAPINE FUMARATE [Suspect]
     Active Substance: QUETIAPINE FUMARATE
     Indication: Schizophrenia
     Dosage: 50 MILLIGRAM, QD
     Route: 065
     Dates: start: 20230113
  2. QUETIAPINE FUMARATE [Suspect]
     Active Substance: QUETIAPINE FUMARATE
     Dosage: 50 MILLIGRAM, QD
     Route: 065
     Dates: start: 20230116
  3. QUETIAPINE FUMARATE [Suspect]
     Active Substance: QUETIAPINE FUMARATE
     Dosage: 50 MILLIGRAM, QD
     Route: 065
     Dates: start: 20230118
  4. QUETIAPINE FUMARATE [Suspect]
     Active Substance: QUETIAPINE FUMARATE
     Dosage: 100 MILLIGRAM, QD
     Route: 065
     Dates: start: 20230123
  5. QUETIAPINE FUMARATE [Suspect]
     Active Substance: QUETIAPINE FUMARATE
     Dosage: 25 MILLIGRAM, QD
     Route: 065
     Dates: start: 20230202
  6. QUETIAPINE FUMARATE [Suspect]
     Active Substance: QUETIAPINE FUMARATE
     Dosage: 25 MILLIGRAM, QD
     Route: 065
     Dates: start: 20230217
  7. OLANZAPINE [Suspect]
     Active Substance: OLANZAPINE
     Indication: Schizophrenia
     Dosage: 5 MILLIGRAM, QD
     Route: 065
     Dates: start: 20230116
  8. OLANZAPINE [Suspect]
     Active Substance: OLANZAPINE
     Dosage: 15 MILLIGRAM, QD
     Route: 065
     Dates: start: 20230118
  9. OLANZAPINE [Suspect]
     Active Substance: OLANZAPINE
     Dosage: 20 MILLIGRAM, QD
     Route: 065
     Dates: start: 20230123
  10. RISPERIDONE [Suspect]
     Active Substance: RISPERIDONE
     Indication: Schizophrenia
     Dosage: 4 MILLIGRAM, QD
     Route: 065
     Dates: start: 20221216
  11. RISPERIDONE [Suspect]
     Active Substance: RISPERIDONE
     Dosage: 5 MILLIGRAM, QD
     Route: 065
     Dates: start: 20221227
  12. RISPERIDONE [Suspect]
     Active Substance: RISPERIDONE
     Dosage: 9 MILLIGRAM, QD
     Route: 065
     Dates: start: 20230112
  13. RISPERIDONE [Suspect]
     Active Substance: RISPERIDONE
     Dosage: 8 MILLIGRAM, QD
     Route: 065
     Dates: start: 20230113
  14. RISPERIDONE [Suspect]
     Active Substance: RISPERIDONE
     Dosage: 6 MILLIGRAM, QD
     Route: 065
     Dates: start: 20230116
  15. LORAZEPAM [Concomitant]
     Active Substance: LORAZEPAM
     Indication: Product used for unknown indication
     Dosage: 3 MILLIGRAM, QD (DAILY)
     Route: 065
  16. BIPERIDEN [Concomitant]
     Active Substance: BIPERIDEN
     Indication: Parkinsonism
     Dosage: 2 MILLIGRAM, BID
     Route: 065
  17. BIPERIDEN [Concomitant]
     Active Substance: BIPERIDEN
     Dosage: 3 MILLIGRAM, QD (DAILY)
     Route: 065
     Dates: start: 20230112

REACTIONS (2)
  - Cardiac arrest [Recovering/Resolving]
  - Pulmonary embolism [Recovering/Resolving]

NARRATIVE: CASE EVENT DATE: 20230123
